FAERS Safety Report 5197549-3 (Version None)
Quarter: 2006Q4

REPORT INFORMATION
  Report Type: 
  Country: None (occurrence: None)
  Receive Date: 20060926
  Receipt Date: 20060714
  Transmission Date: 20070319
  Serious: No
  Sender: FDA-Public Use
  Company Number: SP00890

PATIENT
  Age: 54 Year
  Sex: Male
  Weight: 74.8435 kg

DRUGS (2)
  1. XIFAXAN [Suspect]
     Indication: COLITIS
     Dosage: 200MG/2 TABLETS TID, ORAL
     Route: 048
     Dates: start: 20060607, end: 20060612
  2. PAXIL [Concomitant]

REACTIONS (2)
  - DYSPNOEA [None]
  - HEART RATE INCREASED [None]
